FAERS Safety Report 9280298 (Version 1)
Quarter: 2013Q2

REPORT INFORMATION
  Report Type: Spontaneous
  Country: US (occurrence: US)
  Receive Date: 20130509
  Receipt Date: 20130509
  Transmission Date: 20140414
  Serious: Yes (Hospitalization, Other)
  Sender: FDA-Public Use
  Company Number: US-CELGENEUS-163-21880-13040641

PATIENT
  Sex: Female

DRUGS (2)
  1. REVLIMID [Suspect]
     Indication: PLASMA CELL MYELOMA
     Dosage: 10 MILLIGRAM
     Route: 048
     Dates: start: 20090313, end: 20101227
  2. REVLIMID [Suspect]
     Dosage: 5 MILLIGRAM
     Route: 048
     Dates: start: 20130404

REACTIONS (8)
  - Arthropathy [Unknown]
  - Femur fracture [Unknown]
  - Rib fracture [Unknown]
  - Fall [Unknown]
  - Blood count abnormal [Unknown]
  - Infection [Unknown]
  - Oedema [Unknown]
  - Fatigue [Unknown]
